FAERS Safety Report 9683748 (Version 3)
Quarter: 2014Q2

REPORT INFORMATION
  Report Type: Spontaneous
  Country: US (occurrence: US)
  Receive Date: 20131112
  Receipt Date: 20140520
  Transmission Date: 20141212
  Serious: Yes (Hospitalization, Other)
  Sender: FDA-Public Use
  Company Number: US-BAXTER-2013BAX044741

PATIENT
  Sex: Male

DRUGS (14)
  1. DIANEAL LOW CALCIUM [Suspect]
     Indication: PERITONEAL DIALYSIS
     Route: 033
     Dates: start: 201110, end: 201309
  2. DIANEAL LOW CALCIUM [Suspect]
     Route: 033
     Dates: start: 201110, end: 201309
  3. DIANEAL LOW CALCIUM [Suspect]
     Route: 033
     Dates: start: 201311
  4. DIANEAL LOW CALCIUM [Suspect]
     Route: 033
     Dates: start: 201311
  5. DIANEAL LOW CALCIUM [Suspect]
     Indication: PERITONEAL DIALYSIS
     Route: 033
     Dates: start: 201110, end: 201309
  6. DIANEAL LOW CALCIUM [Suspect]
     Route: 033
     Dates: start: 201110, end: 201309
  7. DIANEAL LOW CALCIUM [Suspect]
     Route: 033
     Dates: start: 201311
  8. DIANEAL LOW CALCIUM [Suspect]
     Route: 033
     Dates: start: 201311
  9. DIANEAL LOW CALCIUM (ULTRABAG) [Suspect]
     Indication: PERITONEAL DIALYSIS
     Route: 033
     Dates: start: 201110, end: 201309
  10. DIANEAL LOW CALCIUM (ULTRABAG) [Suspect]
     Route: 033
     Dates: start: 201311
  11. DIANEAL LOW CALCIUM (ULTRABAG) [Suspect]
     Route: 033
     Dates: start: 201311
  12. DIANEAL LOW CALCIUM (ULTRABAG) [Suspect]
     Indication: PERITONEAL DIALYSIS
     Route: 033
     Dates: start: 201110, end: 201309
  13. DIANEAL LOW CALCIUM (ULTRABAG) [Suspect]
     Route: 033
     Dates: start: 201311
  14. DIANEAL LOW CALCIUM (ULTRABAG) [Suspect]
     Route: 033
     Dates: start: 201311

REACTIONS (5)
  - Inguinal hernia [Recovering/Resolving]
  - Scrotal swelling [Recovering/Resolving]
  - Hernia [Unknown]
  - Impaired healing [Unknown]
  - Post procedural complication [Unknown]
